FAERS Safety Report 21565206 (Version 1)
Quarter: 2022Q4

REPORT INFORMATION
  Report Type: Spontaneous
  Country: US (occurrence: None)
  Receive Date: 20221107
  Receipt Date: 20221107
  Transmission Date: 20230112
  Serious: No
  Sender: FDA-Public Use
  Company Number: None

PATIENT
  Age: 78 Year
  Sex: Male

DRUGS (9)
  1. CAPECITABINE [Suspect]
     Active Substance: CAPECITABINE
     Dosage: FREQUENCY : TWICE A DAY;?
     Route: 048
     Dates: end: 20221011
  2. AMLODIPINE [Concomitant]
     Active Substance: AMLODIPINE BESYLATE
  3. AVASTIN [Concomitant]
     Active Substance: BEVACIZUMAB
  4. DULOXETINE [Concomitant]
     Active Substance: DULOXETINE
  5. ELIQUIS [Concomitant]
     Active Substance: APIXABAN
  6. GABAPENTIN [Concomitant]
     Active Substance: GABAPENTIN
  7. LIDOCAINE\PRILOCAINE [Concomitant]
     Active Substance: LIDOCAINE\PRILOCAINE
  8. PROCHLORPERAZINE [Concomitant]
     Active Substance: PROCHLORPERAZINE
  9. ZIRABEV [Concomitant]
     Active Substance: BEVACIZUMAB-BVZR

REACTIONS (2)
  - Intestinal obstruction [None]
  - Therapy interrupted [None]
